FAERS Safety Report 4300567-8 (Version None)
Quarter: 2004Q1

REPORT INFORMATION
  Report Type: 
  Country: None (occurrence: None)
  Receive Date: 20040220
  Receipt Date: 20000605
  Transmission Date: 20041129
  Serious: Yes (Disabling)
  Sender: FDA-Public Use
  Company Number: FR-ROCHE-238143

PATIENT
  Age: 37 Year
  Sex: Male

DRUGS (11)
  1. INVIRASE [Suspect]
     Indication: HIV INFECTION
     Route: 048
     Dates: start: 19970815
  2. FORTOVASE [Suspect]
     Indication: DRUG USE FOR UNKNOWN INDICATION
     Route: 048
     Dates: end: 19990315
  3. VIDEX [Suspect]
     Indication: DRUG USE FOR UNKNOWN INDICATION
     Route: 048
  4. RETROVIR [Suspect]
     Indication: HIV INFECTION
     Route: 048
  5. EPIVIR [Suspect]
     Indication: HIV INFECTION
     Route: 048
     Dates: start: 19990315
  6. ZERIT [Suspect]
     Indication: HIV INFECTION
     Route: 048
     Dates: start: 19990315
  7. RITONAVIR [Suspect]
     Indication: DRUG USE FOR UNKNOWN INDICATION
     Route: 048
     Dates: start: 19960615, end: 19960915
  8. 3TC [Concomitant]
     Dates: start: 19960615, end: 19970715
  9. INDINAVIR [Concomitant]
     Dates: start: 19961015, end: 19970715
  10. D4T [Concomitant]
     Dates: start: 19970815
  11. DELAVIRDINE [Concomitant]
     Dates: start: 19970815, end: 19990315

REACTIONS (14)
  - ACCIDENT [None]
  - ANAEMIA [None]
  - DEPRESSION [None]
  - DYSAESTHESIA [None]
  - FATIGUE [None]
  - FRACTURE [None]
  - INFLAMMATION [None]
  - LEUKOPENIA [None]
  - MUSCLE ATROPHY [None]
  - NEUROPATHY PERIPHERAL [None]
  - NEUTROPENIA [None]
  - OSTEOPOROSIS [None]
  - TUBERCULOSIS [None]
  - VITAMIN D DEFICIENCY [None]
